FAERS Safety Report 6992537-6 (Version None)
Quarter: 2010Q3

REPORT INFORMATION
  Report Type: 
  Country: None (occurrence: None)
  Receive Date: 20100916
  Receipt Date: 20100916
  Transmission Date: 20110219
  Serious: Yes (Hospitalization)
  Sender: FDA-Public Use
  Company Number: None

PATIENT
  Age: 91 Year
  Sex: Female

DRUGS (1)
  1. RITUXUMAB [Suspect]
     Dates: start: 20091123, end: 20091123

REACTIONS (4)
  - COUGH [None]
  - DYSPNOEA [None]
  - PHARYNGEAL OEDEMA [None]
  - TACHYCARDIA [None]
